FAERS Safety Report 21713464 (Version 1)
Quarter: 2022Q4

REPORT INFORMATION
  Report Type: Spontaneous
  Country: US (occurrence: None)
  Receive Date: 20221208
  Receipt Date: 20221208
  Transmission Date: 20230113
  Serious: No
  Sender: FDA-Public Use
  Company Number: None

PATIENT
  Age: 75 Year
  Sex: Male
  Weight: 89 kg

DRUGS (1)
  1. ERTAPENEM [Suspect]
     Active Substance: ERTAPENEM
     Indication: Urosepsis
     Dosage: FREQUENCY : DAILY;?
     Route: 042
     Dates: start: 20220720, end: 20220730

REACTIONS (6)
  - Urosepsis [None]
  - Nephrolithiasis [None]
  - Hydrocephalus [None]
  - Mental status changes [None]
  - Confusional state [None]
  - Decreased activity [None]

NARRATIVE: CASE EVENT DATE: 20220802
